FAERS Safety Report 6230309-0 (Version None)
Quarter: 2009Q2

REPORT INFORMATION
  Report Type: 
  Country: None (occurrence: None)
  Receive Date: 20090615
  Receipt Date: 20090610
  Transmission Date: 20091009
  Serious: Yes (Other)
  Sender: FDA-Public Use
  Company Number: ES-MERCK-0904ESP00039

PATIENT
  Age: 46 Month
  Sex: Male

DRUGS (1)
  1. SINGULAIR [Suspect]
     Indication: ASTHMA
     Route: 048
     Dates: start: 20090407, end: 20090413

REACTIONS (9)
  - AGGRESSION [None]
  - AGITATION [None]
  - ASTHENIA [None]
  - DIARRHOEA [None]
  - INSOMNIA [None]
  - IRRITABILITY [None]
  - SOMNOLENCE [None]
  - TACHYCARDIA [None]
  - THIRST [None]
